FAERS Safety Report 13633126 (Version 1)
Quarter: 2017Q2

REPORT INFORMATION
  Report Type: Spontaneous
  Country: US (occurrence: US)
  Receive Date: 20170531
  Receipt Date: 20170531
  Transmission Date: 20170830
  Serious: No
  Sender: FDA-Public Use
  Company Number: US-ASTELLAS-1509465

PATIENT
  Age: 82 Year
  Sex: Male

DRUGS (17)
  1. SIMVASTATIN. [Concomitant]
     Active Substance: SIMVASTATIN
  2. NEVANAC [Concomitant]
     Active Substance: NEPAFENAC
  3. TARCEVA [Suspect]
     Active Substance: ERLOTINIB HYDROCHLORIDE
     Indication: LUNG NEOPLASM MALIGNANT
     Route: 048
     Dates: start: 20140916
  4. JANUVIA [Concomitant]
     Active Substance: SITAGLIPTIN PHOSPHATE
  5. ONDANSETRON [Concomitant]
     Active Substance: ONDANSETRON
  6. METFORMIN [Concomitant]
     Active Substance: METFORMIN HYDROCHLORIDE
     Route: 065
  7. DIOVAN [Concomitant]
     Active Substance: VALSARTAN
  8. DUREZOL [Concomitant]
     Active Substance: DIFLUPREDNATE
  9. VENTOLIN [Concomitant]
     Active Substance: ALBUTEROL SULFATE
  10. GLIPIZIDE. [Concomitant]
     Active Substance: GLIPIZIDE
  11. MEGESTROL [Concomitant]
     Active Substance: MEGESTROL
  12. LANTUS [Concomitant]
     Active Substance: INSULIN GLARGINE
  13. CLOTRIMAZOLE. [Concomitant]
     Active Substance: CLOTRIMAZOLE
  14. BESIVANCE [Concomitant]
     Active Substance: BESIFLOXACIN
  15. PROAIR HFA [Concomitant]
     Active Substance: ALBUTEROL SULFATE
  16. GLYBURIDE. [Concomitant]
     Active Substance: GLYBURIDE
  17. GABAPENTIN. [Concomitant]
     Active Substance: GABAPENTIN

REACTIONS (2)
  - Fatigue [Not Recovered/Not Resolved]
  - Nausea [Not Recovered/Not Resolved]
